FAERS Safety Report 15481593 (Version 2)
Quarter: 2018Q4

REPORT INFORMATION
  Report Type: Spontaneous
  Country: US (occurrence: US)
  Receive Date: 20181010
  Receipt Date: 20181015
  Transmission Date: 20190205
  Serious: No
  Sender: FDA-Public Use
  Company Number: US-ASTRAZENECA-2018SF23128

PATIENT
  Age: 24348 Day
  Sex: Female

DRUGS (4)
  1. FASLODEX [Suspect]
     Active Substance: FULVESTRANT
     Indication: BREAST CANCER FEMALE
     Route: 030
     Dates: start: 20170719
  2. IBRANCE [Suspect]
     Active Substance: PALBOCICLIB
     Indication: BREAST CANCER FEMALE
     Dosage: 125 MG UNKNOWN
     Route: 048
     Dates: start: 20170719
  3. FASLODEX [Suspect]
     Active Substance: FULVESTRANT
     Indication: MALIGNANT MELANOMA
     Route: 030
     Dates: start: 20170719
  4. IBRANCE [Suspect]
     Active Substance: PALBOCICLIB
     Indication: MALIGNANT MELANOMA
     Dosage: 125 MG UNKNOWN
     Route: 048
     Dates: start: 20170719

REACTIONS (4)
  - Product dose omission [Unknown]
  - Dysstasia [Unknown]
  - Off label use [Unknown]
  - Product use in unapproved indication [Unknown]

NARRATIVE: CASE EVENT DATE: 20170719
